FAERS Safety Report 4596964-6 (Version None)
Quarter: 2005Q1

REPORT INFORMATION
  Report Type: 
  Country: None (occurrence: None)
  Receive Date: 20050302
  Receipt Date: 20050224
  Transmission Date: 20050727
  Serious: Yes (Other)
  Sender: FDA-Public Use
  Company Number: GB-ABBOTT-05P-167-0292037-00

PATIENT
  Age: 28 Year
  Sex: Female

DRUGS (7)
  1. ERYTHROMYCIN [Suspect]
     Indication: ROSACEA
     Route: 048
  2. PREDNISOLONE [Suspect]
     Indication: ROSACEA
     Route: 048
  3. PREDNISOLONE [Suspect]
     Route: 048
  4. PREDNISOLONE [Suspect]
     Route: 048
  5. PREDNISOLONE [Suspect]
     Route: 048
  6. PREDNISOLONE [Suspect]
     Route: 048
  7. PREDNISOLONE [Suspect]
     Route: 048

REACTIONS (3)
  - GESTATIONAL DIABETES [None]
  - INTRA-UTERINE DEATH [None]
  - OLIGOHYDRAMNIOS [None]
